FAERS Safety Report 13695451 (Version 1)
Quarter: 2017Q2

REPORT INFORMATION
  Report Type: Spontaneous
  Country: GB (occurrence: GB)
  Receive Date: 20170627
  Receipt Date: 20170627
  Transmission Date: 20170830
  Serious: Yes (Hospitalization, Other)
  Sender: FDA-Public Use
  Company Number: PHFR2017GB002240

PATIENT
  Sex: Male

DRUGS (2)
  1. NEORAL [Suspect]
     Active Substance: CYCLOSPORINE
     Indication: LIVER TRANSPLANT
     Dosage: 50 MG, BID
     Route: 065
     Dates: start: 201701
  2. NEORAL [Suspect]
     Active Substance: CYCLOSPORINE
     Dosage: 200 MG, BID
     Route: 065

REACTIONS (10)
  - Renal failure [Unknown]
  - General physical health deterioration [Unknown]
  - Gait disturbance [Unknown]
  - Feeling abnormal [Unknown]
  - Asthenia [Unknown]
  - Liver transplant rejection [Unknown]
  - Pain [Unknown]
  - Asterixis [Unknown]
  - Back pain [Unknown]
  - Muscle spasms [Unknown]

NARRATIVE: CASE EVENT DATE: 20170310
